FAERS Safety Report 11403684 (Version 1)
Quarter: 2015Q3

REPORT INFORMATION
  Report Type: Spontaneous
  Country: US (occurrence: US)
  Receive Date: 20150821
  Receipt Date: 20150821
  Transmission Date: 20151125
  Serious: No
  Sender: FDA-Public Use
  Company Number: US-TEVA-562887USA

PATIENT
  Sex: Female

DRUGS (1)
  1. PAROXETINE [Suspect]
     Active Substance: PAROXETINE\PAROXETINE HYDROCHLORIDE
     Route: 065

REACTIONS (4)
  - Foreign body [Unknown]
  - Oropharyngeal pain [Unknown]
  - Dysphagia [Unknown]
  - Throat irritation [Unknown]
